FAERS Safety Report 8923151 (Version 1)
Quarter: 2012Q4

REPORT INFORMATION
  Report Type: 
  Country: BR (occurrence: BR)
  Receive Date: 20121123
  Receipt Date: 20121123
  Transmission Date: 20130627
  Serious: Yes (Other)
  Sender: FDA-Public Use
  Company Number: BR-PFIZER INC-2012288028

PATIENT
  Age: 8 Year
  Sex: Female

DRUGS (6)
  1. DETRUSITOL LA [Suspect]
     Indication: URETHRAL DISORDER
     Dosage: 0.5 capsule of strength 4 mg (2 mg) daily
     Route: 048
     Dates: start: 20121116
  2. RETIMIC [Suspect]
     Dosage: UNK
  3. DOXAZOSIN [Concomitant]
     Indication: URETHRAL DISORDER
     Dosage: 1.5 ml, 1x/day
     Dates: start: 2010
  4. DOXAZOSIN [Concomitant]
     Indication: INFECTION
  5. CRANBERRY [Concomitant]
     Indication: URINARY INFECTION
     Dosage: UNK
     Dates: start: 2010
  6. CRANBERRY [Concomitant]
     Indication: KIDNEY DISORDER

REACTIONS (6)
  - Infection [Unknown]
  - Somnolence [Unknown]
  - Dry eye [Unknown]
  - Off label use [Unknown]
  - Off label use [Unknown]
  - Wrong technique in drug usage process [Not Recovered/Not Resolved]
